FAERS Safety Report 16975687 (Version 1)
Quarter: 2019Q4

REPORT INFORMATION
  Report Type: Spontaneous
  Country: US (occurrence: US)
  Receive Date: 20191030
  Receipt Date: 20191030
  Transmission Date: 20200122
  Serious: No
  Sender: FDA-Public Use
  Company Number: US-COVIS PHARMA B.V.-2019COV00138

PATIENT
  Sex: Male

DRUGS (1)
  1. ZETONNA [Suspect]
     Active Substance: CICLESONIDE
     Dosage: UNK
     Dates: start: 201905

REACTIONS (2)
  - Product dispensing issue [Unknown]
  - Rhinalgia [Unknown]
